FAERS Safety Report 21571006 (Version 1)
Quarter: 2022Q4

REPORT INFORMATION
  Report Type: Spontaneous
  Country: CA (occurrence: CA)
  Receive Date: 20221109
  Receipt Date: 20221109
  Transmission Date: 20230113
  Serious: Yes (Other)
  Sender: FDA-Public Use
  Company Number: CA-SA-SAC20221103000366

PATIENT
  Age: 37 Year
  Sex: Female

DRUGS (18)
  1. METFORMIN HYDROCHLORIDE [Suspect]
     Active Substance: METFORMIN HYDROCHLORIDE
     Dosage: UNK
  2. RANITIDINE HYDROCHLORIDE [Suspect]
     Active Substance: RANITIDINE HYDROCHLORIDE
     Dosage: UNK
  3. PANTOPRAZOLE SODIUM [Suspect]
     Active Substance: PANTOPRAZOLE SODIUM
     Dosage: UNK
  4. ROSUVASTATIN CALCIUM [Suspect]
     Active Substance: ROSUVASTATIN CALCIUM
     Dosage: UNK
  5. RABEPRAZOLE [Suspect]
     Active Substance: RABEPRAZOLE
     Dosage: UNK
  6. ARAVA [Concomitant]
     Active Substance: LEFLUNOMIDE
  7. ARTHROTEC [Concomitant]
     Active Substance: DICLOFENAC SODIUM\MISOPROSTOL
  8. AZATHIOPRINE [Concomitant]
     Active Substance: AZATHIOPRINE
  9. ENBREL [Concomitant]
     Active Substance: ETANERCEPT
  10. HUMIRA [Concomitant]
     Active Substance: ADALIMUMAB
     Route: 058
  11. JARDIANCE [Concomitant]
     Active Substance: EMPAGLIFLOZIN
  12. METHOTREXATE [Concomitant]
     Active Substance: METHOTREXATE
     Route: 048
  13. RAMIPRIL [Concomitant]
     Active Substance: RAMIPRIL
  14. REMICADE [Concomitant]
     Active Substance: INFLIXIMAB
     Route: 042
  15. SIMPONI [Concomitant]
     Active Substance: GOLIMUMAB
     Route: 058
  16. STELARA [Concomitant]
     Active Substance: USTEKINUMAB
     Route: 058
  17. SULFASALAZINE [Concomitant]
     Active Substance: SULFASALAZINE
  18. VITAMIN D NOS [Concomitant]
     Active Substance: VITAMIN D NOS

REACTIONS (6)
  - Abdominal discomfort [Unknown]
  - Alopecia [Unknown]
  - Epistaxis [Unknown]
  - Mouth haemorrhage [Unknown]
  - Thrombosis [Unknown]
  - Drug ineffective [Unknown]
